FAERS Safety Report 23456632 (Version 1)
Quarter: 2024Q1

REPORT INFORMATION
  Report Type: Spontaneous
  Country: US (occurrence: None)
  Receive Date: 20240129
  Receipt Date: 20240129
  Transmission Date: 20240410
  Serious: No
  Sender: FDA-Public Use
  Company Number: None

PATIENT
  Age: 69 Year
  Sex: Male

DRUGS (1)
  1. VYVGART [Suspect]
     Active Substance: EFGARTIGIMOD ALFA-FCAB
     Dosage: WEEKLY INTRAVENOUS ?
     Route: 042

REACTIONS (5)
  - Infusion related reaction [None]
  - Unresponsive to stimuli [None]
  - Jaw disorder [None]
  - Blood pressure increased [None]
  - Cognitive disorder [None]

NARRATIVE: CASE EVENT DATE: 20240128
